FAERS Safety Report 8391026-4 (Version None)
Quarter: 2012Q2

REPORT INFORMATION
  Report Type: 
  Country: None (occurrence: None)
  Receive Date: 20120529
  Receipt Date: 20120515
  Transmission Date: 20120825
  Serious: Yes (Other)
  Sender: FDA-Public Use
  Company Number: US-JNJFOC-20120514120

PATIENT

DRUGS (1)
  1. USTEKINUMAB [Suspect]
     Indication: PSORIASIS
     Dosage: 3-4 DOSES FOR AN AVERAGE OF 28 WEEKS
     Route: 058

REACTIONS (5)
  - C-REACTIVE PROTEIN INCREASED [None]
  - ENDOTHELIAL DYSFUNCTION [None]
  - ANTINEUTROPHIL CYTOPLASMIC ANTIBODY DECREASED [None]
  - C-REACTIVE PROTEIN DECREASED [None]
  - ANTINEUTROPHIL CYTOPLASMIC ANTIBODY INCREASED [None]
